FAERS Safety Report 23462048 (Version 1)
Quarter: 2024Q1

REPORT INFORMATION
  Report Type: Report from Study
  Country: US (occurrence: None)
  Receive Date: 20240131
  Receipt Date: 20240131
  Transmission Date: 20240410
  Serious: Yes (Hospitalization)
  Sender: FDA-Public Use
  Company Number: 2024A019628

PATIENT
  Sex: Male

DRUGS (1)
  1. CALQUENCE [Suspect]
     Active Substance: ACALABRUTINIB
     Indication: Chronic lymphocytic leukaemia
     Route: 048

REACTIONS (6)
  - Presyncope [Unknown]
  - Atrial fibrillation [Unknown]
  - Tachycardia [Unknown]
  - Heart rate increased [Unknown]
  - White blood cell count abnormal [Unknown]
  - Asthma [Unknown]
